FAERS Safety Report 21096103 (Version 6)
Quarter: 2024Q1

REPORT INFORMATION
  Report Type: Report from Study
  Country: US (occurrence: US)
  Receive Date: 20220718
  Receipt Date: 20240205
  Transmission Date: 20240410
  Serious: Yes (Other)
  Sender: FDA-Public Use
  Company Number: US-TAKEDA-2021TUS024284

PATIENT
  Sex: Female

DRUGS (3)
  1. HUMAN IMMUNOGLOBULIN G [Suspect]
     Active Substance: HUMAN IMMUNOGLOBULIN G
     Indication: Primary immunodeficiency syndrome
     Dosage: UNK
     Route: 058
  2. HUMAN IMMUNOGLOBULIN G [Suspect]
     Active Substance: HUMAN IMMUNOGLOBULIN G
     Indication: Immunodeficiency common variable
     Dosage: 17.5 GRAM, 1/WEEK
     Route: 058
  3. HUMAN IMMUNOGLOBULIN G [Suspect]
     Active Substance: HUMAN IMMUNOGLOBULIN G
     Dosage: UNK
     Route: 042

REACTIONS (12)
  - Foot fracture [Unknown]
  - Urinary tract infection [Unknown]
  - Infection [Unknown]
  - Periarthritis [Unknown]
  - Postural orthostatic tachycardia syndrome [Unknown]
  - Thyroid mass [Unknown]
  - Sinusitis [Unknown]
  - Vertigo [Unknown]
  - Urticaria [Unknown]
  - Bronchitis [Recovering/Resolving]
  - Insurance issue [Unknown]
  - Product use issue [Unknown]
